FAERS Safety Report 4492939-6 (Version None)
Quarter: 2004Q3

REPORT INFORMATION
  Report Type: 
  Country: None (occurrence: None)
  Receive Date: 20040921
  Receipt Date: 20040310
  Transmission Date: 20050211
  Serious: Yes (Death)
  Sender: FDA-Public Use
  Company Number: 163-20785-04030259 (0)

PATIENT
  Age: 83 Year
  Sex: Male

DRUGS (1)
  1. THALOMID [Suspect]
     Indication: HEPATIC NEOPLASM MALIGNANT
     Dosage: 50 MG, ORAL
     Route: 048
     Dates: start: 20030930

REACTIONS (3)
  - ALPHA 1 FOETOPROTEIN [None]
  - DEATH [None]
  - DISEASE PROGRESSION [None]
